FAERS Safety Report 25268930 (Version 5)
Quarter: 2025Q3

REPORT INFORMATION
  Report Type: Spontaneous
  Country: US (occurrence: US)
  Receive Date: 20250505
  Receipt Date: 20250903
  Transmission Date: 20251021
  Serious: No
  Sender: BRISTOL-MYERS SQUIBB COMPANY
  Company Number: US-BRISTOL-MYERS SQUIBB COMPANY-2025-064486

PATIENT
  Age: 67 Year
  Sex: Male

DRUGS (1)
  1. POMALYST [Suspect]
     Active Substance: POMALIDOMIDE
     Indication: Plasma cell myeloma
     Route: 048

REACTIONS (7)
  - Depression [Unknown]
  - Fluid retention [Unknown]
  - Constipation [Unknown]
  - Chromaturia [Not Recovered/Not Resolved]
  - Tremor [Unknown]
  - Flank pain [Unknown]
  - Panic attack [Unknown]
